FAERS Safety Report 7150520-4 (Version None)
Quarter: 2010Q4

REPORT INFORMATION
  Report Type: 
  Country: None (occurrence: None)
  Receive Date: 20101124
  Receipt Date: 20101119
  Transmission Date: 20110411
  Serious: Yes (Hospitalization)
  Sender: FDA-Public Use
  Company Number: 8042970

PATIENT
  Sex: Male
  Weight: 89.5 kg

DRUGS (10)
  1. CERTOLIZUMAB PEGOL [Suspect]
     Indication: RHEUMATOID ARTHRITIS
     Dosage: (400 MG  1X/2 WEEKS, - NR OF DOSES :8 SUBCUTANEOUS), (200 MG, - NR OF DOSES :89 SUBCUTANEOUS)
     Route: 058
     Dates: start: 20050405, end: 20050714
  2. CERTOLIZUMAB PEGOL [Suspect]
     Indication: RHEUMATOID ARTHRITIS
     Dosage: (400 MG  1X/2 WEEKS, - NR OF DOSES :8 SUBCUTANEOUS), (200 MG, - NR OF DOSES :89 SUBCUTANEOUS)
     Route: 058
     Dates: start: 20050727
  3. MAXZIDE [Concomitant]
  4. VOLTAREN [Concomitant]
  5. PREDNISONE [Concomitant]
  6. METHOTREXATE [Concomitant]
  7. AMITRIPTYLINE [Concomitant]
  8. ALBUTEROL /00139501/ [Concomitant]
  9. COMBIVENT /01261001/ [Concomitant]
  10. TYLENOL EXTRA STRENGTH [Concomitant]

REACTIONS (2)
  - CELLULITIS [None]
  - SYNCOPE [None]
